FAERS Safety Report 17785337 (Version 4)
Quarter: 2020Q2

REPORT INFORMATION
  Report Type: Spontaneous
  Country: IL (occurrence: IL)
  Receive Date: 20200514
  Receipt Date: 20200624
  Transmission Date: 20200714
  Serious: Yes (Hospitalization, Other)
  Sender: FDA-Public Use
  Company Number: IL-PFIZER INC-2018347010

PATIENT
  Age: 60 Year
  Sex: Male

DRUGS (3)
  1. ELELYSO [Suspect]
     Active Substance: TALIGLUCERASE ALFA
     Dosage: 1200 IU, TWICE A MONTH
     Route: 042
  2. ELELYSO [Suspect]
     Active Substance: TALIGLUCERASE ALFA
     Dosage: 1200 IU FOR INFUSTION TWICE A MONTH
     Route: 042
  3. ELELYSO [Suspect]
     Active Substance: TALIGLUCERASE ALFA
     Indication: GAUCHER^S DISEASE
     Dosage: 1200 IU
     Route: 042

REACTIONS (8)
  - Pain in extremity [Unknown]
  - Back pain [Unknown]
  - Inappropriate schedule of product administration [Unknown]
  - Arthralgia [Unknown]
  - Off label use [Unknown]
  - Chest pain [Unknown]
  - Stress [Unknown]
  - Fatigue [Unknown]

NARRATIVE: CASE EVENT DATE: 20180902
